FAERS Safety Report 8846903 (Version 3)
Quarter: 2013Q1

REPORT INFORMATION
  Report Type: Spontaneous
  Country: US (occurrence: None)
  Receive Date: 20121016
  Receipt Date: 20130325
  Transmission Date: 20140127
  Serious: Yes (Other)
  Sender: FDA-Public Use
  Company Number: 2012-4636

PATIENT
  Age: 13 Year
  Sex: Male

DRUGS (3)
  1. INCRELEX [Suspect]
     Indication: PRIMARY INSULIN LIKE GROWTH FACTOR-1 DEFICIENCY
     Dosage: 240 MCG/KG (120 UG/KG, 2 IN 1 D)
     Dates: start: 20090421, end: 201104
  2. IRON (IRON) [Concomitant]
  3. VYVANCE (ALL OTHER THERAPEUTIC PRODUCTS) [Concomitant]

REACTIONS (1)
  - Hyperplasia [None]
